FAERS Safety Report 15026850 (Version 1)
Quarter: 2018Q2

REPORT INFORMATION
  Report Type: Other
  Country: DE (occurrence: DE)
  Receive Date: 20180619
  Receipt Date: 20180619
  Transmission Date: 20180711
  Serious: No
  Sender: FDA-Public Use
  Company Number: DE-LUPIN PHARMACEUTICALS INC.-2017-02736

PATIENT

DRUGS (1)
  1. DESLORATADINE TABLETS, 5 MG [Suspect]
     Active Substance: DESLORATADINE
     Indication: HYPERSENSITIVITY
     Dosage: 1 DF, UNK
     Route: 048
     Dates: start: 20170423

REACTIONS (10)
  - Headache [Recovered/Resolved]
  - Myalgia [Unknown]
  - Asthenia [Unknown]
  - Dizziness [Recovered/Resolved]
  - Swelling face [Recovered/Resolved]
  - Limb discomfort [Unknown]
  - Joint stiffness [Unknown]
  - Fatigue [Unknown]
  - Balance disorder [Unknown]
  - Arthralgia [Unknown]

NARRATIVE: CASE EVENT DATE: 20170424
